FAERS Safety Report 12820551 (Version 1)
Quarter: 2016Q4

REPORT INFORMATION
  Report Type: Spontaneous
  Country: US (occurrence: US)
  Receive Date: 20161006
  Receipt Date: 20161006
  Transmission Date: 20170207
  Serious: Yes (Other)
  Sender: FDA-Public Use
  Company Number: US-SA-2016SA182672

PATIENT
  Sex: Male

DRUGS (1)
  1. GOLD BOND ULTIMATE LOTION/CREAM GENERIC [Suspect]
     Active Substance: DIMETHICONE\PETROLATUM
     Route: 065

REACTIONS (1)
  - Mesothelioma [Not Recovered/Not Resolved]
